FAERS Safety Report 9258207 (Version 1)
Quarter: 2013Q2

REPORT INFORMATION
  Report Type: Spontaneous
  Country: US (occurrence: US)
  Receive Date: 20130426
  Receipt Date: 20130426
  Transmission Date: 20140414
  Serious: Yes (Hospitalization)
  Sender: FDA-Public Use
  Company Number: US-BAYER-2013-051324

PATIENT
  Age: 26 Year
  Sex: Female
  Weight: 118.37 kg

DRUGS (11)
  1. YAZ [Suspect]
  2. YASMIN [Suspect]
  3. TOPICORT [Concomitant]
     Dosage: APPLY TO FINGERS 1 TO 2 TIMES PER DAY
     Route: 061
     Dates: start: 20040120
  4. ASPIRIN [Concomitant]
     Dosage: UNK
     Route: 048
     Dates: start: 20040211
  5. PEPCID [Concomitant]
     Dosage: 40 MG, UNK
     Route: 048
     Dates: start: 20040211
  6. PENICILLIN VK [Concomitant]
     Dosage: 500 MG, TID
     Route: 048
     Dates: start: 20040211
  7. DIFLUCAN [Concomitant]
     Dosage: 150 MG, UNK
     Route: 048
     Dates: start: 20040211
  8. PRILOSEC [Concomitant]
     Dosage: UNK
     Route: 048
     Dates: start: 20040321
  9. TORADOL [Concomitant]
  10. LEVAQUIN [Concomitant]
  11. XANAX [Concomitant]
     Dosage: 0.25 MG, UNK

REACTIONS (2)
  - Pulmonary embolism [None]
  - Deep vein thrombosis [None]
